FAERS Safety Report 17337192 (Version 1)
Quarter: 2020Q1

REPORT INFORMATION
  Report Type: Spontaneous
  Country: US (occurrence: US)
  Receive Date: 20200129
  Receipt Date: 20200129
  Transmission Date: 20200409
  Serious: Yes (Other)
  Sender: FDA-Public Use
  Company Number: US-MELINTA THERAPEUTICS, INC-US-MLNT-20-00019

PATIENT
  Age: 42 Year
  Sex: Female

DRUGS (6)
  1. CEFEPIME [Concomitant]
     Active Substance: CEFEPIME HYDROCHLORIDE
     Indication: OSTEOMYELITIS CHRONIC
     Dosage: NOT PROVIDED.
     Route: 042
  2. CIPROFLOXACIN. [Concomitant]
     Active Substance: CIPROFLOXACIN
     Indication: OSTEOMYELITIS CHRONIC
     Dosage: NOT PROVIDED.
     Route: 048
  3. FLUCONAZOLE. [Concomitant]
     Active Substance: FLUCONAZOLE
     Indication: OSTEOMYELITIS CHRONIC
     Dosage: NOT PROVIDED.
  4. VANCOMYCIN [Concomitant]
     Active Substance: VANCOMYCIN
     Indication: OSTEOMYELITIS CHRONIC
     Dosage: NOT PROVIDED.
     Route: 042
  5. BAXDELA [Suspect]
     Active Substance: DELAFLOXACIN MEGLUMINE
     Indication: OSTEOMYELITIS CHRONIC
     Route: 048
  6. DOXY [Concomitant]
     Active Substance: DOXYCYCLINE
     Indication: OSTEOMYELITIS CHRONIC
     Dosage: NOT PROVIDED.
     Route: 048

REACTIONS (4)
  - Joint arthroplasty [Unknown]
  - Off label use [Unknown]
  - Bunion operation [Unknown]
  - Drug effective for unapproved indication [Unknown]
